FAERS Safety Report 6543825-9 (Version None)
Quarter: 2010Q1

REPORT INFORMATION
  Report Type: 
  Country: None (occurrence: None)
  Receive Date: 20100119
  Receipt Date: 20100119
  Transmission Date: 20100710
  Serious: Yes (Other)
  Sender: FDA-Public Use
  Company Number: None

PATIENT
  Age: 50 Year
  Sex: Female
  Weight: 81.6475 kg

DRUGS (1)
  1. FEXOFENADINE [Suspect]
     Indication: MULTIPLE ALLERGIES
     Dosage: 180 MG/DAILY DAILY PO
     Route: 048
     Dates: start: 20061115, end: 20070215

REACTIONS (3)
  - ABDOMINAL DISCOMFORT [None]
  - NAUSEA [None]
  - PRODUCT ODOUR ABNORMAL [None]
